FAERS Safety Report 17164938 (Version 1)
Quarter: 2019Q4

REPORT INFORMATION
  Report Type: Spontaneous
  Country: GR (occurrence: GR)
  Receive Date: 20191217
  Receipt Date: 20191217
  Transmission Date: 20200122
  Serious: Yes (Other)
  Sender: FDA-Public Use
  Company Number: GR-MYLANLABS-2019M1123254

PATIENT
  Age: 59 Year
  Sex: Male
  Weight: 75 kg

DRUGS (1)
  1. ANAGRELIDE. [Suspect]
     Active Substance: ANAGRELIDE HYDROCHLORIDE
     Indication: THROMBOCYTOSIS
     Dosage: 2 MILLIGRAM, QD
     Route: 048
     Dates: start: 20060102, end: 20060125

REACTIONS (3)
  - Dyspnoea [Recovered/Resolved]
  - Discomfort [Recovered/Resolved]
  - Rash [Recovered/Resolved]
